FAERS Safety Report 17692680 (Version 1)
Quarter: 2020Q2

REPORT INFORMATION
  Report Type: Spontaneous
  Country: US (occurrence: US)
  Receive Date: 20200420
  Receipt Date: 20200420
  Transmission Date: 20200714
  Serious: Yes (Hospitalization)
  Sender: FDA-Public Use
  Company Number: None

PATIENT
  Age: 33 Year
  Sex: Female

DRUGS (21)
  1. ALPRAZOLAM. [Concomitant]
     Active Substance: ALPRAZOLAM
  2. PANTOPRAZOLE [Concomitant]
     Active Substance: PANTOPRAZOLE
  3. HYDROMORPHON [Concomitant]
     Active Substance: HYDROMORPHONE
  4. MUPIROCIN. [Concomitant]
     Active Substance: MUPIROCIN
  5. VALACYCLOVIR [Concomitant]
     Active Substance: VALACYCLOVIR HYDROCHLORIDE
  6. FUROSEMIDE. [Concomitant]
     Active Substance: FUROSEMIDE
  7. NMEGESTROL AC [Concomitant]
  8. CALCITRIOL. [Concomitant]
     Active Substance: CALCITRIOL
  9. GABAPENTIN. [Concomitant]
     Active Substance: GABAPENTIN
  10. SMZ/TMP DS [Concomitant]
     Active Substance: SULFAMETHOXAZOLE\TRIMETHOPRIM
  11. KISQALI [Suspect]
     Active Substance: RIBOCICLIB
     Indication: BREAST CANCER MALE
     Route: 048
     Dates: start: 20200213
  12. LEVETIRACETA [Concomitant]
  13. NYSTATIN. [Concomitant]
     Active Substance: NYSTATIN
  14. DEXAMETHASON [Concomitant]
     Active Substance: DEXAMETHASONE
  15. METHOCARBAM [Concomitant]
     Active Substance: METHOCARBAMOL
  16. FLUCONAZOLE. [Concomitant]
     Active Substance: FLUCONAZOLE
  17. HYDROCHLOROT [Concomitant]
     Active Substance: HYDROCHLOROTHIAZIDE
  18. HYDROCO/APAP [Concomitant]
     Active Substance: ACETAMINOPHEN\HYDROCODONE
  19. KETACONAZOLE [Concomitant]
     Active Substance: KETOCONAZOLE
  20. METOPROL TAR [Concomitant]
  21. TRAMADOL HCL [Concomitant]
     Active Substance: TRAMADOL HYDROCHLORIDE

REACTIONS (1)
  - Hospitalisation [None]

NARRATIVE: CASE EVENT DATE: 20200420
